FAERS Safety Report 7361398-8 (Version None)
Quarter: 2011Q1

REPORT INFORMATION
  Report Type: 
  Country: None (occurrence: None)
  Receive Date: 20110318
  Receipt Date: 20110316
  Transmission Date: 20110831
  Serious: Yes (Hospitalization)
  Sender: FDA-Public Use
  Company Number: US-ELI_LILLY_AND_COMPANY-US201103005213

PATIENT
  Age: 55 Year
  Sex: Male

DRUGS (8)
  1. MICARDIS [Concomitant]
     Indication: HYPERTENSION
     Dosage: 40 MG, DAILY (1/D)
     Route: 048
     Dates: start: 20101103
  2. CLOPIDOGREL [Suspect]
     Indication: ACUTE CORONARY SYNDROME
     Dosage: 75 MG, UNK
     Dates: start: 20100520, end: 20100902
  3. ASPIRIN [Concomitant]
     Indication: PROPHYLAXIS
     Dosage: 325 MG, UNK
     Dates: start: 20100520
  4. FISH OIL [Concomitant]
     Indication: HYPERLIPIDAEMIA
     Dates: start: 20100602
  5. CLOPIDOGREL [Suspect]
     Dosage: 75 MG, UNK
     Dates: end: 20101108
  6. SIMVASTATIN [Concomitant]
     Indication: HYPERLIPIDAEMIA
     Dosage: 40 MG, DAILY (1/D)
     Route: 048
  7. BYSTOLIC [Concomitant]
     Indication: HYPERTENSION
     Dosage: UNK, DAILY (1/D)
     Route: 048
     Dates: start: 20100902
  8. PRASUGREL HYDROCHLORIDE [Suspect]
     Indication: ACUTE CORONARY SYNDROME
     Dosage: 10 MG, UNK
     Route: 048
     Dates: end: 20101103

REACTIONS (1)
  - ANGINA UNSTABLE [None]
